FAERS Safety Report 4755971-0 (Version None)
Quarter: 2005Q3

REPORT INFORMATION
  Report Type: 
  Country: None (occurrence: None)
  Receive Date: 20050826
  Receipt Date: 20050323
  Transmission Date: 20060218
  Serious: Yes (Other)
  Sender: FDA-Public Use
  Company Number: USA-2003-0009065

PATIENT
  Age: 37 Year
  Sex: Male
  Weight: 92.5 kg

DRUGS (6)
  1. OXYCONTIN [Suspect]
     Indication: PAIN
     Dosage: 20 MG, DAILY
  2. REMERON [Concomitant]
  3. ZANAFLEX [Concomitant]
  4. TALWIN [Concomitant]
  5. VIOXX [Concomitant]
  6. NEURONTIN [Concomitant]

REACTIONS (30)
  - ABDOMINAL PAIN [None]
  - ANXIETY [None]
  - ARTHRALGIA [None]
  - ARTHRITIS [None]
  - ASTHENIA [None]
  - CHANGE OF BOWEL HABIT [None]
  - CHILLS [None]
  - DECREASED APPETITE [None]
  - DEPRESSION [None]
  - DIARRHOEA [None]
  - DIZZINESS [None]
  - DRUG ABUSER [None]
  - DRUG DEPENDENCE [None]
  - DRUG WITHDRAWAL SYNDROME [None]
  - EMOTIONAL DISTRESS [None]
  - HEADACHE [None]
  - HYPOAESTHESIA [None]
  - INADEQUATE ANALGESIA [None]
  - INSOMNIA [None]
  - MUSCLE SPASMS [None]
  - MUSCULOSKELETAL STIFFNESS [None]
  - MYALGIA [None]
  - NAUSEA [None]
  - PAIN [None]
  - PAIN IN EXTREMITY [None]
  - PARAESTHESIA [None]
  - STRESS [None]
  - TOOTH DISORDER [None]
  - TREMOR [None]
  - WEIGHT INCREASED [None]
